FAERS Safety Report 21295288 (Version 1)
Quarter: 2022Q3

REPORT INFORMATION
  Report Type: Report from Study
  Country: CO (occurrence: CO)
  Receive Date: 20220905
  Receipt Date: 20220905
  Transmission Date: 20221027
  Serious: Yes (Other)
  Sender: FDA-Public Use
  Company Number: CO-ABBVIE-22K-036-4528870-00

PATIENT
  Age: 88 Year
  Sex: Male

DRUGS (1)
  1. VENCLEXTA [Suspect]
     Active Substance: VENETOCLAX
     Indication: Chronic lymphocytic leukaemia
     Route: 048
     Dates: start: 20220801, end: 20220814

REACTIONS (6)
  - Pulmonary oedema [Recovering/Resolving]
  - Discouragement [Recovering/Resolving]
  - Malaise [Recovering/Resolving]
  - Fluid retention [Recovering/Resolving]
  - Hypotension [Recovering/Resolving]
  - Oedema peripheral [Not Recovered/Not Resolved]

NARRATIVE: CASE EVENT DATE: 20220801
